FAERS Safety Report 14281472 (Version 1)
Quarter: 2017Q4

REPORT INFORMATION
  Report Type: Spontaneous
  Country: US (occurrence: None)
  Receive Date: 20171213
  Receipt Date: 20171213
  Transmission Date: 20180321
  Serious: No
  Sender: FDA-Public Use
  Company Number: None

PATIENT
  Age: 57 Year
  Sex: Female

DRUGS (16)
  1. CRESTOR [Concomitant]
     Active Substance: ROSUVASTATIN CALCIUM
  2. DIGOXIN. [Concomitant]
     Active Substance: DIGOXIN
  3. DILLT-XR [Concomitant]
  4. FOLIC ACID. [Concomitant]
     Active Substance: FOLIC ACID
  5. HYDROXYCHLOR [Concomitant]
     Active Substance: HYDROXYCHLOROQUINE
  6. POT CITRATE [Concomitant]
     Active Substance: POTASSIUM CITRATE
  7. CIMZIA [Suspect]
     Active Substance: CERTOLIZUMAB PEGOL
     Indication: RHEUMATOID ARTHRITIS
     Dosage: 400 MG Q4WEEKS SQ
     Route: 058
     Dates: start: 20170202
  8. CEVIMELINE. [Concomitant]
     Active Substance: CEVIMELINE
  9. NADOLOL. [Concomitant]
     Active Substance: NADOLOL
  10. EFFER-K MEG [Concomitant]
  11. FUROSEMIDE. [Concomitant]
     Active Substance: FUROSEMIDE
  12. LORAZEPAM. [Concomitant]
     Active Substance: LORAZEPAM
  13. ROSUVASTATIN. [Concomitant]
     Active Substance: ROSUVASTATIN
  14. ESOMEPRAZOLE [Concomitant]
     Active Substance: ESOMEPRAZOLE
  15. EVOXAC [Concomitant]
     Active Substance: CEVIMELINE HYDROCHLORIDE
  16. POT CL MICRO [Concomitant]

REACTIONS (1)
  - Condition aggravated [None]

NARRATIVE: CASE EVENT DATE: 20171212
